FAERS Safety Report 5061155-1 (Version None)
Quarter: 2006Q3

REPORT INFORMATION
  Report Type: 
  Country: None (occurrence: None)
  Receive Date: 20060720
  Receipt Date: 20060720
  Transmission Date: 20061208
  Serious: Yes (Hospitalization)
  Sender: FDA-Public Use
  Company Number: None

PATIENT
  Sex: Female

DRUGS (4)
  1. ERBITUX [Suspect]
     Indication: NEOPLASM MALIGNANT
     Dosage: 392.5 MG, WEEKLY, IV
     Route: 042
     Dates: start: 20060412, end: 20060626
  2. PACLITAXEL [Suspect]
     Indication: NEOPLASM MALIGNANT
     Dosage: 62.8 MG, WEEKLY, IV
     Route: 042
     Dates: start: 20060515, end: 20060626
  3. CARBOPLATIN [Suspect]
     Indication: NEOPLASM MALIGNANT
     Dosage: 127 MG, WEEKLY, IV
     Route: 042
     Dates: start: 20060515, end: 20060626
  4. RADIATION [Suspect]
     Indication: NEOPLASM MALIGNANT
     Dosage: SEE IMAGE
     Dates: start: 20060515, end: 20060707

REACTIONS (11)
  - BLOOD MAGNESIUM DECREASED [None]
  - CONFUSIONAL STATE [None]
  - DEHYDRATION [None]
  - DRUG WITHDRAWAL SYNDROME [None]
  - FAILURE TO THRIVE [None]
  - HYPOKALAEMIA [None]
  - INCORRECT DOSE ADMINISTERED [None]
  - MENTAL STATUS CHANGES [None]
  - PULMONARY EMBOLISM [None]
  - TREMOR [None]
  - WEIGHT DECREASED [None]
